FAERS Safety Report 9701118 (Version 2)
Quarter: 2014Q1

REPORT INFORMATION
  Report Type: Report from Study
  Country: GB (occurrence: GB)
  Receive Date: 20131121
  Receipt Date: 20140113
  Transmission Date: 20141002
  Serious: Yes (Hospitalization)
  Sender: FDA-Public Use
  Company Number: GB-009507513-1310GBR008336

PATIENT
  Age: 75 Year
  Sex: Female
  Weight: 59 kg

DRUGS (4)
  1. ALENDRONATE SODIUM [Suspect]
     Indication: OSTEOPOROSIS
     Dosage: 70 MG, QW
     Route: 048
     Dates: start: 20070122
  2. MK-0000 (281) [Suspect]
     Indication: OSTEOPOROSIS
  3. CALCICHEW D3 [Concomitant]
     Indication: OSTEOPOROSIS
     Dosage: DAILY
     Dates: start: 20020704
  4. OMEPRAZOLE [Concomitant]
     Indication: GASTROINTESTINAL DISORDER
     Dosage: DAILY
     Dates: start: 20070404

REACTIONS (1)
  - Humerus fracture [Recovered/Resolved with Sequelae]
